FAERS Safety Report 24069363 (Version 1)
Quarter: 2024Q3

REPORT INFORMATION
  Report Type: Report from Study
  Country: PE (occurrence: PE)
  Receive Date: 20240710
  Receipt Date: 20240710
  Transmission Date: 20241016
  Serious: No
  Sender: ROCHE
  Company Number: PE-ROCHE-3509622

PATIENT
  Age: 37 Year
  Sex: Male

DRUGS (1)
  1. ALECENSA [Suspect]
     Active Substance: ALECTINIB HYDROCHLORIDE
     Indication: Lung neoplasm malignant
     Route: 048

REACTIONS (3)
  - Malaise [Unknown]
  - Pulmonary pain [Unknown]
  - Cough [Unknown]
